FAERS Safety Report 5551236-8 (Version None)
Quarter: 2007Q4

REPORT INFORMATION
  Report Type: 
  Country: None (occurrence: None)
  Receive Date: 20071210
  Receipt Date: 20071126
  Transmission Date: 20080405
  Serious: Yes (Hospitalization)
  Sender: FDA-Public Use
  Company Number: 2007JP003930

PATIENT
  Age: 66 Year
  Sex: Female
  Weight: 58 kg

DRUGS (7)
  1. PROGRAF [Suspect]
     Indication: INTERSTITIAL LUNG DISEASE
     Dosage: 3 MG, ORAL
     Route: 048
     Dates: start: 20060801, end: 20070713
  2. ZANTAC 150 [Suspect]
     Indication: PROPHYLAXIS AGAINST GASTROINTESTINAL ULCER
     Dates: end: 20070713
  3. BAKTAR                      (SULFAMETHOXAZOLE, TRIMETHOPRIM) [Concomitant]
  4. BONALON                 (ALENDRONIC ACID) [Concomitant]
  5. PANALDINE                   (TICLOPIDINE HYDROCHLORIDE) [Concomitant]
  6. CRESTOR [Concomitant]
  7. PREDNISOLONE [Concomitant]

REACTIONS (1)
  - APLASTIC ANAEMIA [None]
